FAERS Safety Report 21364266 (Version 1)
Quarter: 2022Q3

REPORT INFORMATION
  Report Type: Spontaneous
  Country: US (occurrence: US)
  Receive Date: 20220922
  Receipt Date: 20220922
  Transmission Date: 20221027
  Serious: No
  Sender: FDA-Public Use
  Company Number: US-BAYER-2022A131997

PATIENT
  Sex: Male

DRUGS (1)
  1. CLARITIN REDITABS [Suspect]
     Active Substance: LORATADINE
     Indication: Product used for unknown indication
     Dosage: 2 DF
     Route: 048
     Dates: start: 20220921, end: 20220921

REACTIONS (1)
  - Extra dose administered [Unknown]

NARRATIVE: CASE EVENT DATE: 20220921
